FAERS Safety Report 17269554 (Version 1)
Quarter: 2020Q1

REPORT INFORMATION
  Report Type: Spontaneous
  Country: IT (occurrence: IT)
  Receive Date: 20200114
  Receipt Date: 20200114
  Transmission Date: 20200409
  Serious: Yes (Other)
  Sender: FDA-Public Use
  Company Number: IT-MYLANLABS-2020M1003619

PATIENT
  Age: 32 Year
  Sex: Female

DRUGS (4)
  1. GLATIRAMER [Suspect]
     Active Substance: GLATIRAMER
     Indication: RELAPSING-REMITTING MULTIPLE SCLEROSIS
     Dosage: 0.33 WEEK
     Route: 058
  2. INTERFERON BETA-1A [Suspect]
     Active Substance: INTERFERON BETA-1A
     Dosage: LOW DOSE
     Route: 058
  3. DIMETHYL FUMARATE [Suspect]
     Active Substance: DIMETHYL FUMARATE
     Indication: RELAPSING-REMITTING MULTIPLE SCLEROSIS
     Dosage: 240 MILLIGRAM, 0.5 DAY
     Route: 048
  4. INTERFERON BETA-1A [Suspect]
     Active Substance: INTERFERON BETA-1A
     Indication: RELAPSING-REMITTING MULTIPLE SCLEROSIS
     Dosage: 0.33 WEEK (HIGH DOSE)
     Route: 058

REACTIONS (1)
  - Hepatotoxicity [Recovering/Resolving]
